FAERS Safety Report 8017097-2 (Version None)
Quarter: 2012Q1

REPORT INFORMATION
  Report Type: 
  Country: None (occurrence: None)
  Receive Date: 20120102
  Receipt Date: 20111227
  Transmission Date: 20120608
  Serious: Yes (Hospitalization)
  Sender: FDA-Public Use
  Company Number: JP-ROCHE-GNE323673

PATIENT
  Age: 80 Year
  Sex: Male

DRUGS (6)
  1. RADICUT [Suspect]
     Indication: EMBOLIC STROKE
     Dosage: 30 MG, BID
     Dates: start: 20110512, end: 20110525
  2. GLYCEOL [Concomitant]
     Indication: PRODUCT USED FOR UNKNOWN INDICATION
     Dosage: UNK
     Dates: start: 20110513
  3. HEPARIN [Suspect]
     Indication: EMBOLIC STROKE
     Dosage: UNK
     Dates: start: 20110513
  4. ACTIVASE [Suspect]
     Indication: EMBOLIC STROKE
     Dosage: 33.6 ML, QD
     Route: 042
     Dates: start: 20110512, end: 20110512
  5. NICARDIPINE HCL [Suspect]
     Indication: HYPERTENSION
  6. HYPERTENSIVE MEDICATION (UNK INGREDIENTS) [Concomitant]
     Indication: HYPERTENSION

REACTIONS (3)
  - PNEUMONIA ASPIRATION [None]
  - HAEMORRHAGIC CEREBRAL INFARCTION [None]
  - PHLEBITIS [None]
